FAERS Safety Report 6834013-7 (Version None)
Quarter: 2010Q3

REPORT INFORMATION
  Report Type: 
  Country: None (occurrence: None)
  Receive Date: 20100712
  Receipt Date: 20100702
  Transmission Date: 20110219
  Serious: Yes (Hospitalization)
  Sender: FDA-Public Use
  Company Number: FR-AMGEN-QUU422875

PATIENT
  Sex: Female

DRUGS (7)
  1. ENBREL [Suspect]
     Indication: RHEUMATOID ARTHRITIS
     Route: 058
     Dates: start: 20080101
  2. DIAMICRON [Concomitant]
     Dosage: UNKNOWN
     Route: 048
  3. LESCOL [Concomitant]
     Dosage: UNKNOWN
     Route: 048
  4. AMLOR [Concomitant]
     Dosage: UNKNOWN
     Route: 048
  5. CORTANCYL [Concomitant]
     Dosage: UNKNOWN
     Route: 048
  6. APROVEL [Concomitant]
     Dosage: UNKNOWN
     Route: 048
  7. GLUCOPHAGE [Concomitant]
     Dosage: UNKNOWN
     Route: 048

REACTIONS (1)
  - PULMONARY EMBOLISM [None]
